FAERS Safety Report 6094371-0 (Version None)
Quarter: 2009Q1

REPORT INFORMATION
  Report Type: 
  Country: None (occurrence: None)
  Receive Date: 20090226
  Receipt Date: 20090216
  Transmission Date: 20090719
  Serious: Yes (Hospitalization)
  Sender: FDA-Public Use
  Company Number: AT-AVENTIS-200911622GDDC

PATIENT
  Age: 66 Year
  Sex: Male
  Weight: 90 kg

DRUGS (3)
  1. DOCETAXEL [Suspect]
     Route: 042
     Dates: start: 20090213, end: 20090213
  2. CISPLATIN [Suspect]
     Route: 042
     Dates: start: 20090213, end: 20090214
  3. CETUXIMAB [Suspect]
     Route: 042
     Dates: start: 20090213, end: 20090213

REACTIONS (1)
  - GOUTY ARTHRITIS [None]
